FAERS Safety Report 9021531 (Version 4)
Quarter: 2019Q2

REPORT INFORMATION
  Report Type: Report from Study
  Country: CA (occurrence: CA)
  Receive Date: 20130119
  Receipt Date: 20190520
  Transmission Date: 20190711
  Serious: Yes (Other)
  Sender: FDA-Public Use
  Company Number: CA-AMGEN-CANSP2013001734

PATIENT
  Age: 63 Year
  Sex: Female
  Weight: 56.36 kg

DRUGS (3)
  1. CALCIUM [Concomitant]
     Active Substance: CALCIUM
     Dosage: UNK
  2. VITAMIN A + D [COLECALCIFEROL;RETINOL] [Concomitant]
     Dosage: UNK
  3. PROLIA [Suspect]
     Active Substance: DENOSUMAB
     Indication: OSTEOPOROSIS POSTMENOPAUSAL
     Dosage: UNK
     Route: 065
     Dates: start: 20120703

REACTIONS (18)
  - Malaise [Recovered/Resolved]
  - Pain in extremity [Recovering/Resolving]
  - Pain [Unknown]
  - Dysgeusia [Unknown]
  - Asthenia [Unknown]
  - Headache [Recovering/Resolving]
  - Abdominal pain lower [Recovering/Resolving]
  - Product dose omission [Unknown]
  - Bacterial infection [Unknown]
  - Back pain [Unknown]
  - Chest pain [Unknown]
  - Pyrexia [Unknown]
  - Influenza like illness [Unknown]
  - Dizziness [Recovered/Resolved]
  - Mobility decreased [Unknown]
  - Arthralgia [Recovering/Resolving]
  - Fatigue [Unknown]
  - Dysstasia [Recovering/Resolving]

NARRATIVE: CASE EVENT DATE: 2012
